FAERS Safety Report 12447042 (Version 3)
Quarter: 2017Q3

REPORT INFORMATION
  Report Type: Spontaneous
  Country: FR (occurrence: FR)
  Receive Date: 20160608
  Receipt Date: 20170717
  Transmission Date: 20171127
  Serious: Yes (Hospitalization)
  Sender: FDA-Public Use
  Company Number: FR-SA-2016SA106534

PATIENT
  Age: 76 Year
  Sex: Male

DRUGS (7)
  1. GENTAMICIN. [Suspect]
     Active Substance: GENTAMICIN
     Indication: ENDOCARDITIS
     Route: 030
     Dates: start: 20160324, end: 20160406
  2. VANCOMYCINE [Suspect]
     Active Substance: VANCOMYCIN
     Indication: ENDOCARDITIS
     Route: 042
     Dates: start: 20160330, end: 20160420
  3. OROKEN [Concomitant]
     Active Substance: CEFIXIME
  4. ZINNAT [Concomitant]
     Active Substance: CEFUROXIME AXETIL
  5. RIFADINE [Suspect]
     Active Substance: RIFAMPIN
     Indication: ENDOCARDITIS
     Route: 042
     Dates: start: 20160407, end: 20160420
  6. TARGOCID [Concomitant]
     Active Substance: TEICOPLANIN
  7. AMOXICILLINE [Suspect]
     Active Substance: AMOXICILLIN
     Indication: ENDOCARDITIS
     Route: 042
     Dates: start: 20160324, end: 20160407

REACTIONS (1)
  - Drug reaction with eosinophilia and systemic symptoms [Recovered/Resolved]

NARRATIVE: CASE EVENT DATE: 20160426
